FAERS Safety Report 7371175-X (Version None)
Quarter: 2011Q1

REPORT INFORMATION
  Report Type: 
  Country: None (occurrence: None)
  Receive Date: 20110324
  Receipt Date: 20110316
  Transmission Date: 20110831
  Serious: Yes (Other)
  Sender: FDA-Public Use
  Company Number: JP-ASTELLAS-2011JP001962

PATIENT
  Sex: Female

DRUGS (5)
  1. METHOTREXATE [Concomitant]
     Indication: PROPHYLAXIS AGAINST GRAFT VERSUS HOST DISEASE
     Route: 065
  2. BUSULFAN [Concomitant]
     Route: 065
  3. MELPHALAN [Concomitant]
     Route: 065
  4. PROGRAF [Suspect]
     Indication: PROPHYLAXIS AGAINST GRAFT VERSUS HOST DISEASE
     Route: 065
  5. FLUDARABINE [Concomitant]
     Dosage: UNK
     Route: 065

REACTIONS (2)
  - GRAFT VERSUS HOST DISEASE [None]
  - DRUG INEFFECTIVE [None]
